FAERS Safety Report 4598783-3 (Version None)
Quarter: 2005Q1

REPORT INFORMATION
  Report Type: 
  Country: None (occurrence: None)
  Receive Date: 20050301
  Receipt Date: 20050301
  Transmission Date: 20050727
  Serious: No
  Sender: FDA-Public Use
  Company Number: None

PATIENT
  Sex: Male

DRUGS (1)
  1. PAMIDRONATE [Suspect]
     Indication: METASTASES TO BONE
     Dosage: 90 MG MONTHLY IV
     Route: 042

REACTIONS (1)
  - OSTEONECROSIS [None]
